FAERS Safety Report 20591396 (Version 1)
Quarter: 2022Q1

REPORT INFORMATION
  Report Type: Spontaneous
  Country: US (occurrence: US)
  Receive Date: 20220314
  Receipt Date: 20220314
  Transmission Date: 20220424
  Serious: No
  Sender: FDA-Public Use
  Company Number: US-BEH-2022143138

PATIENT
  Age: 41 Year
  Sex: Female

DRUGS (2)
  1. HIZENTRA [Suspect]
     Active Substance: HUMAN IMMUNOGLOBULIN G
     Indication: Immunodeficiency common variable
     Dosage: 2 GRAM, QW
     Route: 058
     Dates: start: 202202
  2. HIZENTRA [Suspect]
     Active Substance: HUMAN IMMUNOGLOBULIN G
     Dosage: 8 GRAM, QW
     Route: 058
     Dates: start: 202202

REACTIONS (4)
  - Paraesthesia [Not Recovered/Not Resolved]
  - Incorrect dose administered [Not Recovered/Not Resolved]
  - Feeling abnormal [Unknown]
  - Throat irritation [Unknown]

NARRATIVE: CASE EVENT DATE: 20220301
